FAERS Safety Report 8466127 (Version 2)
Quarter: 2012Q4

REPORT INFORMATION
  Report Type: 
  Country: US (occurrence: US)
  Receive Date: 20120319
  Receipt Date: 20121009
  Transmission Date: 20130627
  Serious: Yes (Hospitalization)
  Sender: FDA-Public Use
  Company Number: US-BAYER-2012-024311

PATIENT
  Age: 34 Year
  Sex: Female

DRUGS (17)
  1. YAZ [Suspect]
     Indication: ACNE
     Dosage: UNK
     Dates: start: 200001, end: 2009
  2. YAZ [Suspect]
     Indication: PREMENSTRUAL SYNDROME
  3. YASMIN [Suspect]
     Indication: PREMENSTRUAL SYNDROME
     Dosage: UNK
     Dates: start: 200001, end: 2009
  4. YASMIN [Suspect]
     Indication: ACNE
  5. MAXAN [Concomitant]
     Dosage: UNK
     Dates: start: 2007
  6. VITAMIN C [Concomitant]
     Dosage: UNK
     Dates: start: 2000
  7. ADVIL [Concomitant]
     Dosage: UNK
     Dates: start: 1992
  8. METFORMIN [Concomitant]
     Indication: POLYCYSTIC OVARIES
     Dosage: UNK
     Dates: start: 2000
  9. METFORMIN [Concomitant]
     Indication: DEPRESSION
  10. SPIRONOLACTONE [Concomitant]
     Indication: POLYCYSTIC OVARIES
     Dosage: UNK
     Dates: start: 2000
  11. SPIRONOLACTONE [Concomitant]
     Indication: DEPRESSION
  12. ZOLOFT [Concomitant]
     Indication: POLYCYSTIC OVARIES
     Dosage: UNK
     Dates: start: 2000
  13. ZOLOFT [Concomitant]
     Indication: DEPRESSION
  14. LEXAPRO [Concomitant]
     Indication: DEPRESSION
     Dosage: UNK
     Dates: start: 2006
  15. SINGULAIR [Concomitant]
     Indication: MULTIPLE ALLERGIES
     Dosage: UNK
     Dates: start: 2006
  16. LORTAB [Concomitant]
     Indication: BACK PAIN
     Dosage: UNK
     Dates: start: 2006
  17. MULTIVITAMINS [Concomitant]
     Dosage: UNK

REACTIONS (7)
  - Cholelithiasis [None]
  - Pain [None]
  - Injury [None]
  - General physical health deterioration [None]
  - Anxiety [None]
  - Anhedonia [None]
  - Emotional distress [None]
